FAERS Safety Report 24692427 (Version 1)
Quarter: 2024Q4

REPORT INFORMATION
  Report Type: Spontaneous
  Country: NL (occurrence: NL)
  Receive Date: 20241203
  Receipt Date: 20241203
  Transmission Date: 20250115
  Serious: Yes (Hospitalization)
  Sender: GLAXOSMITHKLINE
  Company Number: NL-GSK-NL2024EME148713

PATIENT

DRUGS (2)
  1. VENTOLIN [Suspect]
     Active Substance: ALBUTEROL SULFATE
     Indication: Product used for unknown indication
     Dosage: UNK, 200
  2. VENTOLIN [Suspect]
     Active Substance: ALBUTEROL SULFATE
     Indication: Product used for unknown indication
     Dosage: UNK, 100

REACTIONS (3)
  - Dyspnoea [Unknown]
  - Cough [Unknown]
  - Illness [Unknown]
